FAERS Safety Report 8810217 (Version 7)
Quarter: 2013Q1

REPORT INFORMATION
  Report Type: Spontaneous
  Country: US (occurrence: US)
  Receive Date: 20120926
  Receipt Date: 20130206
  Transmission Date: 20140127
  Serious: Yes (Hospitalization, Disabling, Other)
  Sender: FDA-Public Use
  Company Number: US-009507513-1203USA00208

PATIENT
  Sex: Female

DRUGS (8)
  1. FOSAMAX [Suspect]
     Indication: OSTEOPENIA
     Dosage: 70 MG, QW
     Route: 048
     Dates: start: 200109, end: 200804
  2. FOSAMAX [Suspect]
     Indication: OSTEOPOROSIS
  3. ALENDRONATE SODIUM [Suspect]
     Indication: OSTEOPENIA
     Dosage: 70 MG, QW
     Route: 048
     Dates: start: 200804, end: 201102
  4. ALENDRONATE SODIUM [Suspect]
     Indication: OSTEOPOROSIS
  5. PRILOSEC [Concomitant]
     Indication: GASTROOESOPHAGEAL REFLUX DISEASE
     Dosage: UNK
     Dates: start: 2001
  6. PREVACID [Concomitant]
     Indication: GASTROOESOPHAGEAL REFLUX DISEASE
     Dosage: UNK
     Dates: start: 2001
  7. PREDNISONE [Concomitant]
     Indication: ASTHMA
     Dosage: UNK
  8. FORTEO [Suspect]
     Indication: PRODUCT USED FOR UNKNOWN INDICATION
     Dosage: UNK
     Dates: start: 1999, end: 2001

REACTIONS (41)
  - Femur fracture [Unknown]
  - Fall [Unknown]
  - Open reduction of fracture [Unknown]
  - Patella fracture [Unknown]
  - Open reduction of fracture [Unknown]
  - Pneumonia [Unknown]
  - Tibia fracture [Unknown]
  - Depression [Unknown]
  - Anxiety [Unknown]
  - Osteoporosis [Unknown]
  - Intervertebral disc degeneration [Unknown]
  - Asthma [Unknown]
  - Rib fracture [Not Recovered/Not Resolved]
  - Deep vein thrombosis [Unknown]
  - Venous insufficiency [Unknown]
  - Sinus operation [Unknown]
  - Otitis media [Unknown]
  - Myringotomy [Unknown]
  - Pathological fracture [Unknown]
  - Osteoarthritis [Unknown]
  - Foot fracture [Unknown]
  - Xerosis [Unknown]
  - Fibula fracture [Unknown]
  - Gastrooesophageal reflux disease [Unknown]
  - Ligament sprain [Unknown]
  - Fall [Unknown]
  - Excoriation [Unknown]
  - Lower limb fracture [Unknown]
  - Hypertension [Unknown]
  - Cardiac failure congestive [Unknown]
  - Muscle disorder [Unknown]
  - Acute respiratory failure [Recovering/Resolving]
  - Pneumonitis [Unknown]
  - Urinary tract infection [Unknown]
  - Immunosuppression [Not Recovered/Not Resolved]
  - Adrenal insufficiency [Unknown]
  - Sleep apnoea syndrome [Unknown]
  - Anaemia [Unknown]
  - Steroid therapy [Unknown]
  - Asthenia [Unknown]
  - Bronchoscopy [Unknown]
